FAERS Safety Report 4650472-2 (Version None)
Quarter: 2005Q2

REPORT INFORMATION
  Report Type: 
  Country: None (occurrence: None)
  Receive Date: 20050429
  Receipt Date: 20050420
  Transmission Date: 20051028
  Serious: Yes (Life-Threatening, Hospitalization)
  Sender: FDA-Public Use
  Company Number: RS004863-J

PATIENT
  Age: 76 Year
  Sex: Female
  Weight: 65 kg

DRUGS (7)
  1. RABEPRAZOLE SODIUM [Suspect]
     Indication: GASTRIC ULCER
     Dosage: 20 MG, 1 IN 1 D, ORAL
     Route: 048
     Dates: start: 20041007, end: 20041109
  2. RABEPRAZOLE SODIUM [Suspect]
     Indication: LIVER ABSCESS
     Dosage: 20 MG, 1 IN 1 D, ORAL
     Route: 048
     Dates: start: 20041007, end: 20041109
  3. SULPERAZON (SULPERAZON) [Concomitant]
  4. FAROM (FAROPENEM SODIUM) [Concomitant]
  5. KEFLEX [Concomitant]
  6. LEVOFLOXACIN [Concomitant]
  7. NEO-MINOPHAGEN-C (GLYCYRRHIZIC ACID, AMMONIUM SALT) [Concomitant]

REACTIONS (16)
  - ALANINE AMINOTRANSFERASE INCREASED [None]
  - APLASIA [None]
  - APLASTIC ANAEMIA [None]
  - ASPARTATE AMINOTRANSFERASE INCREASED [None]
  - BILIARY TRACT DISORDER [None]
  - BLOOD ALKALINE PHOSPHATASE INCREASED [None]
  - BLOOD LACTATE DEHYDROGENASE INCREASED [None]
  - CARDIAC FAILURE [None]
  - CONDITION AGGRAVATED [None]
  - GAMMA-GLUTAMYLTRANSFERASE INCREASED [None]
  - HEPATIC FUNCTION ABNORMAL [None]
  - INFECTION [None]
  - MEDIASTINAL HAEMATOMA [None]
  - NASOPHARYNGITIS [None]
  - PANCYTOPENIA [None]
  - PLEURAL EFFUSION [None]
